FAERS Safety Report 10276489 (Version 2)
Quarter: 2014Q4

REPORT INFORMATION
  Report Type: Spontaneous
  Country: JP (occurrence: JP)
  Receive Date: 20140703
  Receipt Date: 20141017
  Transmission Date: 20150528
  Serious: Yes (Other)
  Sender: FDA-Public Use
  Company Number: JP-GE HEALTHCARE MEDICAL DIAGNOSTICS-OMPQ-PR-1406S-0685

PATIENT
  Age: 62 Year
  Sex: Male

DRUGS (9)
  1. FORXIGA [Suspect]
     Active Substance: DAPAGLIFLOZIN
     Route: 065
     Dates: start: 20140612, end: 20140619
  2. FEBUXOSTAT. [Concomitant]
     Active Substance: FEBUXOSTAT
     Dates: start: 201306
  3. MIGLITOL. [Suspect]
     Active Substance: MIGLITOL
     Route: 048
     Dates: start: 20140612
  4. AMARYL [Concomitant]
     Active Substance: GLIMEPIRIDE
     Dates: start: 20140522, end: 20140807
  5. FORXIGA [Suspect]
     Active Substance: DAPAGLIFLOZIN
     Indication: TYPE 2 DIABETES MELLITUS
     Route: 048
     Dates: start: 20140522, end: 20140610
  6. OMNIPAQUE [Suspect]
     Active Substance: IOHEXOL
     Indication: HEPATIC STEATOSIS
     Route: 065
     Dates: start: 20140612, end: 20140612
  7. MIGLITOL. [Suspect]
     Active Substance: MIGLITOL
     Indication: TYPE 2 DIABETES MELLITUS
     Route: 048
     Dates: start: 20140522, end: 20140610
  8. OMNIPAQUE [Suspect]
     Active Substance: IOHEXOL
     Indication: DIAGNOSTIC PROCEDURE
  9. TRAZENTA [Concomitant]
     Active Substance: LINAGLIPTIN
     Dates: start: 20140522

REACTIONS (1)
  - Drug eruption [Recovering/Resolving]

NARRATIVE: CASE EVENT DATE: 20140618
